FAERS Safety Report 9870288 (Version 1)
Quarter: 2014Q1

REPORT INFORMATION
  Report Type: Spontaneous
  Country: US (occurrence: None)
  Receive Date: 20140204
  Receipt Date: 20140204
  Transmission Date: 20141002
  Serious: Yes (Other)
  Sender: FDA-Public Use
  Company Number: None

PATIENT
  Age: 63 Year
  Sex: Female
  Weight: 58.97 kg

DRUGS (2)
  1. WELLBUTRIN XL 300 MG [Suspect]
     Indication: FIBROMYALGIA
     Dosage: 300 MJ 1 PILL A DAY  ONCE DAILY  TAKEN BY MOUTH
     Route: 048
     Dates: start: 20140101, end: 20140129
  2. WELLBUTRIN XL 300 MG [Suspect]
     Indication: DEPRESSION
     Dosage: 300 MJ 1 PILL A DAY  ONCE DAILY  TAKEN BY MOUTH
     Route: 048
     Dates: start: 20140101, end: 20140129

REACTIONS (4)
  - Product quality issue [None]
  - Malaise [None]
  - Product physical issue [None]
  - Product substitution issue [None]
